FAERS Safety Report 5984295-9 (Version None)
Quarter: 2008Q4

REPORT INFORMATION
  Report Type: 
  Country: None (occurrence: None)
  Receive Date: 20081208
  Receipt Date: 20080311
  Transmission Date: 20090506
  Serious: No
  Sender: FDA-Public Use
  Company Number: US-AMGEN-KDL269205

PATIENT
  Sex: Female

DRUGS (1)
  1. ENBREL [Suspect]
     Indication: PSORIASIS
     Route: 058
     Dates: start: 20070801

REACTIONS (5)
  - FATIGUE [None]
  - INCREASED TENDENCY TO BRUISE [None]
  - PSORIASIS [None]
  - SKIN ATROPHY [None]
  - WEIGHT INCREASED [None]
